FAERS Safety Report 8594035 (Version 2)
Quarter: 2012Q4

REPORT INFORMATION
  Report Type: 
  Country: BR (occurrence: BR)
  Receive Date: 20120604
  Receipt Date: 20120830
  Transmission Date: 20130627
  Serious: Yes (Hospitalization)
  Sender: FDA-Public Use
  Company Number: PHHY2012BR047329

PATIENT
  Sex: Female

DRUGS (8)
  1. DIOVAN [Suspect]
     Indication: HYPERTENSION
     Dosage: 1 DF, daily
     Route: 048
  2. AMLODIPINE [Concomitant]
     Indication: HYPERTENSION
     Dosage: 1 DF, daily
     Route: 048
  3. HYDROCHLOROTHIAZIDE [Concomitant]
     Indication: HYPERTENSION
     Dosage: 1 DF, daily
     Route: 048
  4. GABAPENTIN [Concomitant]
     Indication: DEPRESSION
     Dosage: 3 DF, daily
     Route: 048
     Dates: start: 201201
  5. BUSPIRONE [Concomitant]
     Indication: ANXIETY
     Dosage: 3 DF, daily
     Route: 048
     Dates: start: 201201
  6. VENLAFAXINE [Concomitant]
     Indication: DEPRESSION
     Dosage: 1 DF, daily
     Route: 048
  7. CEDILAX [Concomitant]
     Indication: NECK PAIN
  8. CEDILAX [Concomitant]
     Indication: HEADACHE

REACTIONS (6)
  - Pain [Not Recovered/Not Resolved]
  - Hypophagia [Unknown]
  - Asthenia [Recovering/Resolving]
  - Dizziness [Not Recovered/Not Resolved]
  - Neck pain [Not Recovered/Not Resolved]
  - Headache [Not Recovered/Not Resolved]
